FAERS Safety Report 7391200-X (Version None)
Quarter: 2011Q2

REPORT INFORMATION
  Report Type: 
  Country: None (occurrence: None)
  Receive Date: 20110404
  Receipt Date: 20100423
  Transmission Date: 20111010
  Serious: Yes (Other)
  Sender: FDA-Public Use
  Company Number: US-PFIZER INC-2010021755

PATIENT
  Sex: Male
  Weight: 49.09 kg

DRUGS (2)
  1. GENOTROPIN [Suspect]
     Indication: SMALL FOR DATES BABY
     Dosage: 4.6 MG ALTERNATING WITH 4.7 MG, 1 X/DAY
     Dates: start: 20031030, end: 20100215
  2. GENOTROPIN [Suspect]
     Indication: BODY HEIGHT BELOW NORMAL
     Dosage: 4.9 MG, 1X/DAY
     Dates: start: 20091012, end: 20100215

REACTIONS (1)
  - HYPERSENSITIVITY [None]
